FAERS Safety Report 14365852 (Version 2)
Quarter: 2018Q1

REPORT INFORMATION
  Report Type: Report from Study
  Country: None (occurrence: US)
  Receive Date: 20180109
  Receipt Date: 20180202
  Transmission Date: 20180509
  Serious: Yes (Hospitalization, Other)
  Sender: FDA-Public Use
  Company Number: US-ABBVIE-18K-163-2214772-00

PATIENT
  Age: 74 Year
  Sex: Male
  Weight: 98.06 kg

DRUGS (2)
  1. HUMIRA [Suspect]
     Active Substance: ADALIMUMAB
     Indication: PSORIASIS
     Route: 058
  2. HUMIRA [Suspect]
     Active Substance: ADALIMUMAB
     Indication: PSORIATIC ARTHROPATHY
     Route: 058

REACTIONS (11)
  - Loss of consciousness [Recovered/Resolved]
  - Visual impairment [Not Recovered/Not Resolved]
  - Gait disturbance [Recovering/Resolving]
  - Infection [Recovered/Resolved]
  - Adverse reaction [Unknown]
  - Nephrolithiasis [Recovered/Resolved]
  - Deafness [Not Recovered/Not Resolved]
  - Laboratory test abnormal [Unknown]
  - Gait inability [Unknown]
  - Visual impairment [Unknown]
  - Infection [Unknown]

NARRATIVE: CASE EVENT DATE: 2009
